FAERS Safety Report 24529870 (Version 1)
Quarter: 2024Q4

REPORT INFORMATION
  Report Type: Spontaneous
  Country: US (occurrence: None)
  Receive Date: 20241021
  Receipt Date: 20241021
  Transmission Date: 20250115
  Serious: Yes (Other)
  Sender: Public
  Company Number: None

PATIENT
  Age: 58 Year
  Sex: Male

DRUGS (1)
  1. AUSTEDO XR [Suspect]
     Active Substance: DEUTETRABENAZINE
     Indication: Huntington^s disease
     Dosage: FREQUENCY : 3 TIMES A DAY;?

REACTIONS (5)
  - Insurance issue [None]
  - Therapy interrupted [None]
  - Movement disorder [None]
  - Anxiety [None]
  - Suicidal ideation [None]
